FAERS Safety Report 4734419-6 (Version None)
Quarter: 2005Q3

REPORT INFORMATION
  Report Type: 
  Country: None (occurrence: None)
  Receive Date: 20050804
  Receipt Date: 20050726
  Transmission Date: 20060218
  Serious: Yes (Death, Other)
  Sender: FDA-Public Use
  Company Number: JP-BRISTOL-MYERS SQUIBB COMPANY-13059050

PATIENT
  Age: 60 Year
  Sex: Male

DRUGS (7)
  1. EFAVIRENZ CAPS [Suspect]
     Indication: HIV INFECTION
     Route: 048
  2. ZERIT [Concomitant]
  3. EPIVIR [Concomitant]
  4. CLARITHROMYCIN [Concomitant]
  5. GASTER [Concomitant]
  6. DIFLUCAN [Concomitant]
  7. BAKTAR [Concomitant]

REACTIONS (3)
  - DEATH [None]
  - RENAL TUBULAR DISORDER [None]
  - TESTICULAR ATROPHY [None]
